FAERS Safety Report 7575728-5 (Version None)
Quarter: 2011Q2

REPORT INFORMATION
  Report Type: 
  Country: None (occurrence: None)
  Receive Date: 20110628
  Receipt Date: 20110617
  Transmission Date: 20111010
  Serious: No
  Sender: FDA-Public Use
  Company Number: US-BIOGENIDEC-2011BI012018

PATIENT
  Sex: Female

DRUGS (3)
  1. TYSABRI [Suspect]
     Route: 042
     Dates: start: 20071218, end: 20080311
  2. AVONEX [Concomitant]
     Indication: MULTIPLE SCLEROSIS
     Route: 030
  3. TYSABRI [Suspect]
     Indication: MULTIPLE SCLEROSIS
     Route: 042
     Dates: start: 20090108

REACTIONS (6)
  - GAIT DISTURBANCE [None]
  - FATIGUE [None]
  - DECREASED IMMUNE RESPONSIVENESS [None]
  - MOBILITY DECREASED [None]
  - VITAMIN D DECREASED [None]
  - NASOPHARYNGITIS [None]
